FAERS Safety Report 6880953-2 (Version None)
Quarter: 2010Q2

REPORT INFORMATION
  Report Type: 
  Country: None (occurrence: None)
  Receive Date: 20100630
  Receipt Date: 20091210
  Transmission Date: 20101027
  Serious: Yes (Other)
  Sender: FDA-Public Use
  Company Number: 2009288947

PATIENT
  Sex: Male
  Weight: 59 kg

DRUGS (2)
  1. AZITHROMYCIN [Suspect]
     Indication: NASOPHARYNGITIS
     Dosage: 500 MG, 1X/DAY; 250 MG, 1X/DAY
     Dates: start: 20090901, end: 20090901
  2. AZITHROMYCIN [Suspect]
     Indication: NASOPHARYNGITIS
     Dosage: 500 MG, 1X/DAY; 250 MG, 1X/DAY
     Dates: start: 20090901, end: 20090901

REACTIONS (2)
  - DEAFNESS [None]
  - TINNITUS [None]
